FAERS Safety Report 5995138-1 (Version None)
Quarter: 2008Q4

REPORT INFORMATION
  Report Type: 
  Country: None (occurrence: None)
  Receive Date: 20081212
  Receipt Date: 20081203
  Transmission Date: 20090506
  Serious: Yes (Other)
  Sender: FDA-Public Use
  Company Number: PHHY2008JP29568

PATIENT
  Sex: Female

DRUGS (3)
  1. TEGRETOL [Suspect]
     Route: 048
  2. STEROIDS NOS [Suspect]
  3. HORMONES NOS [Suspect]

REACTIONS (2)
  - IMPAIRED HEALING [None]
  - KELOID SCAR [None]
